FAERS Safety Report 9000161 (Version 2)
Quarter: 2015Q4

REPORT INFORMATION
  Report Type: Report from Study
  Country: US (occurrence: US)
  Receive Date: 20130102
  Receipt Date: 20151021
  Transmission Date: 20160305
  Serious: Yes (Hospitalization)
  Sender: FDA-Public Use
  Company Number: US-JNJFOC-20121212069

PATIENT
  Age: 19 Year
  Sex: Female
  Weight: 56.7 kg

DRUGS (7)
  1. CALCIUM AND VITAMIN D [Concomitant]
     Active Substance: CALCIUM\VITAMIN D
  2. HUMIRA [Concomitant]
     Active Substance: ADALIMUMAB
     Dates: start: 20090316
  3. YAZ [Concomitant]
     Active Substance: DROSPIRENONE\ETHINYL ESTRADIOL
     Indication: CONTRACEPTION
  4. VITAMIN D [Concomitant]
     Active Substance: CHOLECALCIFEROL
  5. OMEGA 3 FATTY ACIDS [Concomitant]
     Active Substance: OMEGA-3 FATTY ACIDS
  6. REMICADE [Suspect]
     Active Substance: INFLIXIMAB
     Indication: INFLAMMATORY BOWEL DISEASE
     Route: 042
     Dates: start: 20041212
  7. ASCORBIC ACID. [Concomitant]
     Active Substance: ASCORBIC ACID

REACTIONS (1)
  - Food poisoning [Recovered/Resolved]

NARRATIVE: CASE EVENT DATE: 201209
